FAERS Safety Report 11803574 (Version 2)
Quarter: 2015Q4

REPORT INFORMATION
  Report Type: Spontaneous
  Country: CN (occurrence: CN)
  Receive Date: 20151204
  Receipt Date: 20151214
  Transmission Date: 20160305
  Serious: Yes (Hospitalization)
  Sender: FDA-Public Use
  Company Number: CN-009507513-1511CHN014089

PATIENT
  Age: 68 Year
  Sex: Male

DRUGS (3)
  1. DIPROSPAN [Suspect]
     Active Substance: BETAMETHASONE DIPROPIONATE\BETAMETHASONE SODIUM PHOSPHATE
     Indication: HYPERSENSITIVITY
  2. DIPROSPAN [Suspect]
     Active Substance: BETAMETHASONE DIPROPIONATE\BETAMETHASONE SODIUM PHOSPHATE
     Indication: RHEUMATIC DISORDER
  3. DIPROSPAN [Suspect]
     Active Substance: BETAMETHASONE DIPROPIONATE\BETAMETHASONE SODIUM PHOSPHATE
     Indication: INFLAMMATION
     Dosage: UNK UNK, UNKNOWN
     Route: 048
     Dates: start: 201511

REACTIONS (6)
  - Insomnia [Unknown]
  - Hepatic pain [Not Recovered/Not Resolved]
  - Cardiac disorder [Unknown]
  - Blood test abnormal [Unknown]
  - Palpitations [Unknown]
  - Blood pressure increased [Unknown]

NARRATIVE: CASE EVENT DATE: 2015
